FAERS Safety Report 6660756-4 (Version None)
Quarter: 2010Q1

REPORT INFORMATION
  Report Type: 
  Country: None (occurrence: None)
  Receive Date: 20100331
  Receipt Date: 20100326
  Transmission Date: 20100710
  Serious: Yes (Hospitalization)
  Sender: FDA-Public Use
  Company Number: JP-BAYER-200812396BYL

PATIENT
  Age: 61 Year
  Sex: Male
  Weight: 67 kg

DRUGS (5)
  1. NEXAVAR [Suspect]
     Indication: RENAL CELL CARCINOMA
     Dosage: TOTAL DAILY DOSE: 800 MG  UNIT DOSE: 200 MG
     Route: 048
     Dates: start: 20080708, end: 20080728
  2. NEXAVAR [Suspect]
     Dosage: TOTAL DAILY DOSE: 200 MG  UNIT DOSE: 200 MG
     Route: 048
     Dates: start: 20080822, end: 20100101
  3. METHYCOBAL [Concomitant]
     Route: 048
     Dates: start: 20080705
  4. AMLODIPINE [Concomitant]
     Route: 048
     Dates: start: 20080715
  5. ZOMETA [Concomitant]
     Dosage: 4MG/4WEEK
     Route: 042
     Dates: start: 20060830

REACTIONS (3)
  - ALOPECIA [None]
  - PALMAR-PLANTAR ERYTHRODYSAESTHESIA SYNDROME [None]
  - RENAL IMPAIRMENT [None]
